FAERS Safety Report 25769959 (Version 1)
Quarter: 2025Q3

REPORT INFORMATION
  Report Type: Spontaneous
  Country: CN (occurrence: CN)
  Receive Date: 20250907
  Receipt Date: 20250907
  Transmission Date: 20251020
  Serious: Yes (Hospitalization, Other)
  Sender: DR REDDYS
  Company Number: None

PATIENT
  Age: 73 Year
  Sex: Male
  Weight: 41 kg

DRUGS (1)
  1. OLANZAPINE [Suspect]
     Active Substance: OLANZAPINE
     Indication: Anxiety
     Dosage: 2.5MG,QD
     Route: 048
     Dates: start: 20250724, end: 20250726

REACTIONS (1)
  - Coma hepatic [Recovering/Resolving]

NARRATIVE: CASE EVENT DATE: 20250726
